FAERS Safety Report 9520132 (Version 1)
Quarter: 2013Q1

REPORT INFORMATION
  Report Type: Spontaneous
  Country: US (occurrence: None)
  Receive Date: 20130305
  Receipt Date: 20130305
  Transmission Date: 20140127
  Serious: No
  Sender: FDA-Public Use
  Company Number: 163-21880-12080668

PATIENT
  Age: 63 Year
  Sex: Male

DRUGS (2)
  1. REVLIMID (LENALIDOMIDE) (15 MILLIGRAM, CAPSULES) [Suspect]
     Indication: MYELODYSPLASTIC SYNDROME
     Dosage: 15MG, 1 IN 1D, PO
     Route: 048
     Dates: start: 20120714, end: 20120727
  2. SIMVASTATIN (SIMVASTATIN) [Concomitant]

REACTIONS (9)
  - Haemoglobin decreased [None]
  - Haematocrit decreased [None]
  - Chest pain [None]
  - Hypoaesthesia [None]
  - Paraesthesia [None]
  - Dyspnoea [None]
  - Pyrexia [None]
  - Dizziness [None]
  - Fatigue [None]
